APPROVED DRUG PRODUCT: IDARUBICIN HYDROCHLORIDE
Active Ingredient: IDARUBICIN HYDROCHLORIDE
Strength: 20MG/20ML (1MG/ML)
Dosage Form/Route: SOLUTION;INTRAVENOUS
Application: A065275 | Product #003 | TE Code: AP
Applicant: HIKMA PHARMACEUTICALS USA INC
Approved: Dec 14, 2006 | RLD: No | RS: No | Type: RX